FAERS Safety Report 21305052 (Version 1)
Quarter: 2022Q3

REPORT INFORMATION
  Report Type: Other
  Country: US (occurrence: None)
  Receive Date: 20220907
  Receipt Date: 20220907
  Transmission Date: 20221027
  Serious: Yes (Other)
  Sender: FDA-Public Use
  Company Number: US-ROCHE-3169971

PATIENT
  Age: 48 Year
  Sex: Male
  Weight: 161.17 kg

DRUGS (14)
  1. OCREVUS [Suspect]
     Active Substance: OCRELIZUMAB
     Indication: Relapsing-remitting multiple sclerosis
     Dosage: 600 MG INTRAVENOUS OVER AT LEAST 3.5 HOURS
     Route: 042
     Dates: start: 2021
  2. VALIUM [Suspect]
     Active Substance: DIAZEPAM
     Indication: Vertigo
     Route: 065
  3. ASPIRIN [Concomitant]
     Active Substance: ASPIRIN
     Route: 048
  4. ASPIRIN [Concomitant]
     Active Substance: ASPIRIN
     Dosage: 1 TAB
     Route: 048
  5. JANUVIA [Concomitant]
     Active Substance: SITAGLIPTIN PHOSPHATE
     Dosage: 1 TAB
  6. METFORMIN [Concomitant]
     Active Substance: METFORMIN HYDROCHLORIDE
  7. NEURONTIN [Concomitant]
     Active Substance: GABAPENTIN
     Dosage: 2 TABS AM 1 TAB NOON 2 TABS PM
  8. LOSARTAN POTASSIUM [Concomitant]
     Active Substance: LOSARTAN POTASSIUM
     Dosage: 1 TAB
     Route: 048
  9. PAROXETINE [Concomitant]
     Active Substance: PAROXETINE
     Dosage: 1 TAB
     Route: 048
  10. AMPYRA [Concomitant]
     Active Substance: DALFAMPRIDINE
     Dosage: 1 TAB ER 12 H
  11. ETODOLAC [Concomitant]
     Active Substance: ETODOLAC
     Dosage: DAILY
     Route: 048
  12. BUTALBITAL, ACETAMINOPHEN, AND CAFFEINE [Concomitant]
     Active Substance: ACETAMINOPHEN\BUTALBITAL\CAFFEINE
  13. ACETAMINOPHEN [Concomitant]
     Active Substance: ACETAMINOPHEN
     Dosage: 650 MG PO 30 MIN BEFORE INFUSION
     Route: 048
  14. DIPHENHYDRAMINE [Concomitant]
     Active Substance: DIPHENHYDRAMINE
     Dosage: 50 MG PO 30 MIN BEFORE INFUSION
     Route: 048

REACTIONS (5)
  - Gait disturbance [Unknown]
  - Migraine [Unknown]
  - COVID-19 [Unknown]
  - Axonal neuropathy [Unknown]
  - Off label use [Unknown]

NARRATIVE: CASE EVENT DATE: 20210421
